FAERS Safety Report 4650170-5 (Version None)
Quarter: 2005Q2

REPORT INFORMATION
  Report Type: 
  Country: None (occurrence: None)
  Receive Date: 20050428
  Receipt Date: 20050422
  Transmission Date: 20051028
  Serious: Yes (Hospitalization, Other)
  Sender: FDA-Public Use
  Company Number: 2005050698

PATIENT
  Age: 65 Year
  Sex: Male

DRUGS (8)
  1. LIPITOR [Suspect]
     Indication: DYSLIPIDAEMIA
     Dosage: 80 MG (40 MG, 2 IN 1 D), ORAL
     Route: 048
     Dates: start: 20041001
  2. CAPTOPRIL [Concomitant]
  3. PROPATYLINITRATE (PROPATYLINTRATE) [Concomitant]
  4. BUFFERIN (ACETYSALICYLIC ACID, ALUMINIUM GLYCINATE, MAGNESIUM CARBONAT [Concomitant]
  5. CLOPIDOGREL BISULFATE [Concomitant]
  6. DOXAZOSIN (DOXAZOSIN) [Concomitant]
  7. BUFFERIN [Concomitant]
  8. SPIRONOLACTONE [Concomitant]

REACTIONS (3)
  - MYOCARDIAL INFARCTION [None]
  - PROSTATE CANCER [None]
  - STRESS [None]
